FAERS Safety Report 6295587-0 (Version None)
Quarter: 2009Q3

REPORT INFORMATION
  Report Type: 
  Country: None (occurrence: None)
  Receive Date: 20090731
  Receipt Date: 20090722
  Transmission Date: 20100115
  Serious: Yes (Other)
  Sender: FDA-Public Use
  Company Number: 001308

PATIENT
  Age: 44 Year
  Sex: Female

DRUGS (3)
  1. LACOSAMIDE [Suspect]
     Indication: EPILEPSY
     Dosage: (50 MG QD ORAL)
     Route: 048
     Dates: start: 20090715
  2. KEPPRA [Concomitant]
  3. CARBAMAZEPINE [Concomitant]

REACTIONS (2)
  - FALL [None]
  - HYPERVENTILATION [None]
